FAERS Safety Report 5597848-7 (Version None)
Quarter: 2007Q4

REPORT INFORMATION
  Report Type: 
  Country: None (occurrence: None)
  Receive Date: 20071221
  Receipt Date: 20070724
  Transmission Date: 20080405
  Serious: Yes (Other)
  Sender: FDA-Public Use
  Company Number: US200707006057

PATIENT
  Age: 55 Year
  Sex: Male

DRUGS (8)
  1. HUMALOG [Suspect]
     Dosage: UNK
     Dates: start: 20070701
  2. HUMALOG [Suspect]
     Dosage: UNK
     Dates: start: 20070701
  3. HIMULIN REGULAR (HUMAN INSULIN (RDNA ORIGIN)REGULAR)VIAL [Suspect]
     Dosage: UNK
     Dates: start: 20070701, end: 20070701
  4. NOVOLIN R [Concomitant]
  5. NOVOLIN N [Concomitant]
  6. PAXIL [Concomitant]
  7. XANAX [Concomitant]
  8. BUSPAR [Concomitant]

REACTIONS (3)
  - BLOOD GLUCOSE DECREASED [None]
  - HYPERHIDROSIS [None]
  - LOSS OF CONSCIOUSNESS [None]
